FAERS Safety Report 8950483 (Version 2)
Quarter: 2013Q1

REPORT INFORMATION
  Report Type: Spontaneous
  Country: FR (occurrence: FR)
  Receive Date: 20121206
  Receipt Date: 20130204
  Transmission Date: 20140127
  Serious: Yes (Death, Other)
  Sender: FDA-Public Use
  Company Number: FR-ABBOTT-12P-056-1015912-00

PATIENT
  Age: 33 Year
  Sex: Male

DRUGS (8)
  1. KALETRA [Suspect]
     Indication: HIV INFECTION
     Dosage: 80MG/20MG
     Route: 048
     Dates: start: 20121024, end: 20121112
  2. INTELENCE [Suspect]
     Indication: HIV INFECTION
     Route: 048
     Dates: start: 20121024, end: 20121112
  3. LAMOTRIGINE [Suspect]
     Indication: PARTIAL SEIZURES
     Route: 048
     Dates: start: 20121031, end: 20121112
  4. URBANYL [Suspect]
     Indication: PARTIAL SEIZURES
     Route: 048
     Dates: start: 20121031, end: 20121112
  5. BACTRIM FORTE [Suspect]
     Indication: PROPHYLAXIS
     Dosage: 400MG/80MG
     Route: 048
     Dates: start: 20120923, end: 20121112
  6. FLUCONAZOLE [Suspect]
     Indication: ORAL CANDIDIASIS
     Dosage: 100MG/50ML
     Route: 048
     Dates: start: 20120929, end: 20121112
  7. AUGMENTIN [Suspect]
     Indication: PNEUMONIA ASPIRATION
     Route: 048
     Dates: start: 201211, end: 201211
  8. RECOMBINANT HUMAN INTERLEUKIN-2 [Suspect]
     Indication: PROGRESSIVE MULTIFOCAL LEUKOENCEPHALOPATHY
     Route: 058
     Dates: start: 20121101, end: 20121109

REACTIONS (7)
  - Respiratory failure [Fatal]
  - Cardiac arrest [Fatal]
  - Progressive multifocal leukoencephalopathy [Unknown]
  - Neurological decompensation [Unknown]
  - Convulsion [Unknown]
  - Decreased appetite [Unknown]
  - Weight decreased [Unknown]
